FAERS Safety Report 18572742 (Version 1)
Quarter: 2020Q4

REPORT INFORMATION
  Report Type: Spontaneous
  Country: FR (occurrence: FR)
  Receive Date: 20201202
  Receipt Date: 20201202
  Transmission Date: 20210114
  Serious: Yes (Hospitalization, Other)
  Sender: FDA-Public Use
  Company Number: FR-LUNDBECK-DKLU3024747

PATIENT
  Age: 39 Year
  Sex: Female

DRUGS (4)
  1. AERIUS [Concomitant]
     Indication: HYPERSENSITIVITY
     Route: 065
  2. NOLVADEX [Concomitant]
     Active Substance: TAMOXIFEN CITRATE
     Indication: BREAST CANCER
     Route: 065
  3. URBANYL [Suspect]
     Active Substance: CLOBAZAM
     Indication: SUICIDE ATTEMPT
     Route: 048
     Dates: start: 20180512, end: 20180512
  4. PROPRANOLOL HYDROCHLORIDE. [Suspect]
     Active Substance: PROPRANOLOL HYDROCHLORIDE
     Indication: SUICIDE ATTEMPT
     Route: 048
     Dates: start: 20180512, end: 20180512

REACTIONS (4)
  - Shock [Recovered/Resolved]
  - Intentional overdose [Unknown]
  - Coma [Recovered/Resolved]
  - Toxicity to various agents [Recovered/Resolved]

NARRATIVE: CASE EVENT DATE: 20180512
